FAERS Safety Report 11365714 (Version 1)
Quarter: 2015Q3

REPORT INFORMATION
  Report Type: Spontaneous
  Country: US (occurrence: US)
  Receive Date: 20150811
  Receipt Date: 20150811
  Transmission Date: 20151125
  Serious: No
  Sender: FDA-Public Use
  Company Number: US-ENDO PHARMACEUTICALS INC.-SUMA20140001

PATIENT
  Age: 41 Year
  Sex: Female

DRUGS (1)
  1. SUMAVEL DOSEPRO [Suspect]
     Active Substance: SUMATRIPTAN SUCCINATE
     Indication: PRODUCT USED FOR UNKNOWN INDICATION
     Route: 058
     Dates: start: 20141120, end: 20141120

REACTIONS (3)
  - Device malfunction [Recovered/Resolved]
  - Incorrect dose administered by device [Recovered/Resolved]
  - Accidental exposure to product [Recovered/Resolved]

NARRATIVE: CASE EVENT DATE: 20141120
